FAERS Safety Report 11133979 (Version 1)
Quarter: 2015Q2

REPORT INFORMATION
  Report Type: Spontaneous
  Country: US (occurrence: US)
  Receive Date: 20150524
  Receipt Date: 20150524
  Transmission Date: 20150821
  Serious: No
  Sender: FDA-Public Use
  Company Number: US-JNJFOC-20140506343

PATIENT
  Sex: Female
  Weight: 68.95 kg

DRUGS (9)
  1. FISH OIL [Concomitant]
     Active Substance: FISH OIL
  2. DIGOXIN. [Concomitant]
     Active Substance: DIGOXIN
  3. VITAMIN [Concomitant]
     Active Substance: VITAMINS
  4. BABY ASPIRIN [Concomitant]
     Active Substance: ASPIRIN
  5. ALLEGRA [Concomitant]
     Active Substance: FEXOFENADINE HYDROCHLORIDE
  6. BYSTOLIC [Concomitant]
     Active Substance: NEBIVOLOL HYDROCHLORIDE
  7. AMLODIPINE [Concomitant]
     Active Substance: AMLODIPINE BESYLATE
  8. METFORMIN [Concomitant]
     Active Substance: METFORMIN HYDROCHLORIDE
  9. INVOKANA [Suspect]
     Active Substance: CANAGLIFLOZIN
     Indication: TYPE 2 DIABETES MELLITUS
     Route: 048

REACTIONS (1)
  - Vaginal discharge [Not Recovered/Not Resolved]
